FAERS Safety Report 22119900 (Version 2)
Quarter: 2023Q2

REPORT INFORMATION
  Report Type: Report from Study
  Country: AU (occurrence: AU)
  Receive Date: 20230321
  Receipt Date: 20230526
  Transmission Date: 20230721
  Serious: Yes (Hospitalization, Other)
  Sender: FDA-Public Use
  Company Number: AU-002147023-NVSC2023AU062110

PATIENT
  Age: 76 Year
  Sex: Female
  Weight: 82.8 kg

DRUGS (6)
  1. KYMRIAH [Suspect]
     Active Substance: TISAGENLECLEUCEL
     Indication: Mantle cell lymphoma
     Dosage: 1 UNK
     Route: 065
     Dates: start: 20201215, end: 20201215
  2. IBRUTINIB [Suspect]
     Active Substance: IBRUTINIB
     Indication: Mantle cell lymphoma
     Dosage: 560 MG
     Route: 048
     Dates: start: 20201020
  3. BORTEZOMIB [Concomitant]
     Active Substance: BORTEZOMIB
     Indication: Product used for unknown indication
     Dosage: 2.4 MG, DAILY, DAY 1, 8, 15, 22 OF EVERY 35 DAYS
     Route: 058
     Dates: start: 20230130
  4. LENALIDOMIDE [Concomitant]
     Active Substance: LENALIDOMIDE
     Indication: Product used for unknown indication
     Dosage: 15 MG, DAILY, DAY 1-21 OF EVERY 35 DAYS
     Route: 048
  5. FLUDARABINE [Concomitant]
     Active Substance: FLUDARABINE PHOSPHATE
     Indication: Product used for unknown indication
     Dosage: 50 MG
     Route: 065
     Dates: start: 20201209
  6. CYCLOPHOSPHAMIDE [Concomitant]
     Active Substance: CYCLOPHOSPHAMIDE
     Indication: Product used for unknown indication
     Dosage: 480 MG
     Route: 065
     Dates: start: 20201209

REACTIONS (2)
  - Plasma cell myeloma [Not Recovered/Not Resolved]
  - Delirium [Recovered/Resolved with Sequelae]

NARRATIVE: CASE EVENT DATE: 20221222
